FAERS Safety Report 18622411 (Version 1)
Quarter: 2020Q4

REPORT INFORMATION
  Report Type: Spontaneous
  Country: US (occurrence: US)
  Receive Date: 20201216
  Receipt Date: 20201216
  Transmission Date: 20210114
  Serious: Yes (Other)
  Sender: FDA-Public Use
  Company Number: US-PFIZER INC-2020495193

PATIENT
  Age: 72 Year
  Sex: Female

DRUGS (1)
  1. SIROLIMUS. [Suspect]
     Active Substance: SIROLIMUS
     Dosage: 2 MG, 1X/DAY
     Route: 048

REACTIONS (2)
  - Fall [Unknown]
  - Hip fracture [Unknown]
